FAERS Safety Report 12917532 (Version 1)
Quarter: 2016Q4

REPORT INFORMATION
  Report Type: Report from Study
  Country: BR (occurrence: BR)
  Receive Date: 20161107
  Receipt Date: 20161107
  Transmission Date: 20170207
  Serious: Yes (Other)
  Sender: FDA-Public Use
  Company Number: PHHY2016BR151600

PATIENT
  Sex: Female

DRUGS (1)
  1. ACLASTA [Suspect]
     Active Substance: ZOLEDRONIC ACID
     Indication: PRODUCT USED FOR UNKNOWN INDICATION
     Route: 065

REACTIONS (9)
  - Headache [Unknown]
  - Spinal pain [Unknown]
  - Arthralgia [Unknown]
  - Drug ineffective [Unknown]
  - Abasia [Unknown]
  - Paraesthesia [Unknown]
  - Pain [Unknown]
  - Sciatica [Unknown]
  - Pain in extremity [Unknown]
